FAERS Safety Report 10427013 (Version 2)
Quarter: 2014Q3

REPORT INFORMATION
  Report Type: Spontaneous
  Country: US (occurrence: US)
  Receive Date: 20140903
  Receipt Date: 20140903
  Transmission Date: 20150326
  Serious: Yes (Hospitalization)
  Sender: FDA-Public Use
  Company Number: US-BAUSCH-SYM-2014-21885

PATIENT
  Age: 66 Year
  Sex: Male
  Weight: 106.1 kg

DRUGS (23)
  1. VARENICLINE TARTRATE [Suspect]
     Active Substance: VARENICLINE TARTRATE
     Route: 048
     Dates: start: 20131003, end: 20131218
  2. COLECALCIFEROL/CALCIUM CARBONATE [Suspect]
     Active Substance: CALCIUM CARBONATE\CHOLECALCIFEROL
     Indication: ROUTINE HEALTH MAINTENANCE
     Route: 048
     Dates: start: 20130708
  3. ROSUVASTATIN CALCIUM [Concomitant]
     Active Substance: ROSUVASTATIN CALCIUM
     Indication: PRODUCT USED FOR UNKNOWN INDICATION
     Dates: start: 20130702
  4. CYANOCOBALAMIN. [Concomitant]
     Active Substance: CYANOCOBALAMIN
     Indication: OEDEMA
  5. SENNOSIDE A+B/DOCUSATE [Concomitant]
     Indication: CONSTIPATION
     Dosage: 2 DOSES OF 50MG/ 8.6 MG BID AS NEEDED.
     Dates: start: 20130906
  6. LORAZEPAM. [Suspect]
     Active Substance: LORAZEPAM
     Indication: NAUSEA
     Route: 048
     Dates: start: 20130906
  7. LOSARTAN POTASSIUM. [Concomitant]
     Active Substance: LOSARTAN POTASSIUM
     Indication: HYPERTENSION
     Dates: start: 20130708
  8. LORAZEPAM. [Suspect]
     Active Substance: LORAZEPAM
     Indication: SLEEP DISORDER
  9. VARENICLINE; PLACEBO (CODE NOT BROKEN) [Suspect]
     Active Substance: VARENICLINE
     Dates: start: 20140302, end: 20140312
  10. PEMETREXED [Suspect]
     Active Substance: PEMETREXED
     Indication: CHEMOTHERAPY
     Route: 042
     Dates: start: 20130906
  11. FOLIC ACID. [Concomitant]
     Active Substance: FOLIC ACID
     Indication: RASH
     Dates: start: 20130906
  12. FOLIC ACID. [Concomitant]
     Active Substance: FOLIC ACID
     Indication: OEDEMA
  13. DEXAMETHASONE SODIUM PHOSPHATE [Concomitant]
     Active Substance: DEXAMETHASONE SODIUM PHOSPHATE
     Indication: OEDEMA
  14. VARENICLINE TARTRATE [Suspect]
     Active Substance: VARENICLINE TARTRATE
     Indication: EX-TOBACCO USER
     Route: 048
     Dates: start: 20130926, end: 20130928
  15. LORAZEPAM. [Suspect]
     Active Substance: LORAZEPAM
     Indication: ANXIETY
  16. VARENICLINE; PLACEBO (CODE NOT BROKEN) [Suspect]
     Active Substance: VARENICLINE
     Indication: EX-TOBACCO USER
     Dates: start: 20131219, end: 20140227
  17. VARENICLINE TARTRATE [Suspect]
     Active Substance: VARENICLINE TARTRATE
     Route: 048
     Dates: start: 20130929, end: 20131002
  18. CARBOPLATIN. [Suspect]
     Active Substance: CARBOPLATIN
     Indication: CHEMOTHERAPY
     Route: 042
     Dates: start: 20130906, end: 20131108
  19. DEXAMETHASONE SODIUM PHOSPHATE [Concomitant]
     Active Substance: DEXAMETHASONE SODIUM PHOSPHATE
     Indication: RASH
     Dates: start: 20130906
  20. ONDANSETRON HYDROCHLORIDE. [Concomitant]
     Active Substance: ONDANSETRON HYDROCHLORIDE
     Indication: NAUSEA
     Dates: start: 20130906
  21. CYANOCOBALAMIN. [Concomitant]
     Active Substance: CYANOCOBALAMIN
     Indication: RASH
     Dosage: 1000 UG EVERY 9 WEEK
     Route: 030
     Dates: start: 20130906
  22. ACETYLSALICYLIC ACID [Concomitant]
     Active Substance: ASPIRIN
     Indication: PRODUCT USED FOR UNKNOWN INDICATION
     Dates: start: 20050607
  23. PLAVIX [Concomitant]
     Active Substance: CLOPIDOGREL BISULFATE
     Indication: PRODUCT USED FOR UNKNOWN INDICATION
     Dates: start: 20050607

REACTIONS (1)
  - Hypercalcaemia [Recovering/Resolving]

NARRATIVE: CASE EVENT DATE: 20140228
